FAERS Safety Report 10994856 (Version 1)
Quarter: 2015Q2

REPORT INFORMATION
  Report Type: Spontaneous
  Country: CH (occurrence: CH)
  Receive Date: 20150407
  Receipt Date: 20150407
  Transmission Date: 20150821
  Serious: Yes (Disabling)
  Sender: FDA-Public Use
  Company Number: PHHY2015CH039194

PATIENT
  Sex: Female
  Weight: 60 kg

DRUGS (7)
  1. FEMARA [Suspect]
     Active Substance: LETROZOLE
     Indication: BREAST CANCER
     Dosage: 2.5 MG, EVERY SECOND DAY
     Route: 048
     Dates: start: 2009
  2. PROLIA [Concomitant]
     Active Substance: DENOSUMAB
     Indication: PRODUCT USED FOR UNKNOWN INDICATION
     Dosage: 2 TIMES PER YEAR
     Route: 065
  3. INDERAL [Concomitant]
     Active Substance: PROPRANOLOL HYDROCHLORIDE
     Indication: EXTRASYSTOLES
     Dosage: 80 MG, QD
     Route: 048
     Dates: start: 2009, end: 201404
  4. CONCOR [Suspect]
     Active Substance: BISOPROLOL FUMARATE
     Indication: EXTRASYSTOLES
     Dosage: 2.5 MG, QD
     Route: 048
     Dates: start: 201404
  5. EUTHYROX [Suspect]
     Active Substance: LEVOTHYROXINE SODIUM
     Indication: HYPOTHYROIDISM
     Dosage: 0.05 MG, QD
     Route: 048
     Dates: start: 2004
  6. TEMESTA [Concomitant]
     Active Substance: LORAZEPAM
     Indication: PRODUCT USED FOR UNKNOWN INDICATION
     Dosage: 1 MG, QD
     Route: 048
     Dates: start: 2008
  7. ZURCAL [Concomitant]
     Active Substance: PANTOPRAZOLE SODIUM
     Indication: GASTRITIS
     Dosage: 1 MG, QD
     Route: 065
     Dates: start: 2009, end: 2013

REACTIONS (5)
  - Fatigue [Unknown]
  - Optic nerve injury [Unknown]
  - Asthenopia [Unknown]
  - Ocular hyperaemia [Unknown]
  - Vision blurred [Unknown]
